FAERS Safety Report 7740876-3 (Version None)
Quarter: 2011Q3

REPORT INFORMATION
  Report Type: 
  Country: None (occurrence: None)
  Receive Date: 20110909
  Receipt Date: 20110905
  Transmission Date: 20111222
  Serious: Yes (Other)
  Sender: FDA-Public Use
  Company Number: PHHY2011DE51448

PATIENT
  Sex: Female
  Weight: 62 kg

DRUGS (6)
  1. CLOZAPINE [Suspect]
     Dosage: 25 MG AND 100 MG
     Route: 048
     Dates: start: 20110101
  2. RISPERDAL [Suspect]
  3. LORAZEPAM [Suspect]
  4. PIRENZEPIN [Suspect]
  5. FLUOXETINE [Suspect]
  6. HALOPERIDOL [Suspect]

REACTIONS (3)
  - WEIGHT INCREASED [None]
  - ACNE [None]
  - LIVER FUNCTION TEST ABNORMAL [None]
